FAERS Safety Report 21514088 (Version 1)
Quarter: 2022Q4

REPORT INFORMATION
  Report Type: Spontaneous
  Country: US (occurrence: US)
  Receive Date: 20221027
  Receipt Date: 20221027
  Transmission Date: 20230112
  Serious: No
  Sender: FDA-Public Use
  Company Number: US-MYLANLABS-2022M1117103

PATIENT
  Age: 64 Year

DRUGS (1)
  1. NEURONTIN [Suspect]
     Active Substance: GABAPENTIN
     Indication: Product used for unknown indication
     Dosage: 400 MILLIGRAM, QID ,  (360 CAPSULE), 1 CAPSULE BY MOUTH FOUR TIMES A DAY AS NEEDED
     Route: 048
     Dates: start: 20220927

REACTIONS (1)
  - Off label use [Unknown]

NARRATIVE: CASE EVENT DATE: 20220927
